FAERS Safety Report 24567820 (Version 1)
Quarter: 2024Q4

REPORT INFORMATION
  Report Type: Spontaneous
  Country: FR (occurrence: FR)
  Receive Date: 20241031
  Receipt Date: 20241031
  Transmission Date: 20250114
  Serious: Yes (Hospitalization)
  Sender: ORGANON
  Company Number: None

PATIENT
  Age: 59 Year
  Sex: Male

DRUGS (9)
  1. MIRTAZAPINE [Suspect]
     Active Substance: MIRTAZAPINE
     Indication: Product administration error
     Dosage: 3 DOSAGE FORM, QD
     Route: 048
     Dates: start: 20240927, end: 20240929
  2. LEVOMEPROMAZINE [Suspect]
     Active Substance: LEVOMEPROMAZINE
     Indication: Product administration error
     Dosage: 3 DOSAGE FORM, Q8H (SCORED)
     Route: 048
     Dates: start: 20240927, end: 20240929
  3. RISPERDAL [Suspect]
     Active Substance: RISPERIDONE
     Indication: Product administration error
     Dosage: 3 DOSAGE FORM, QD (SCORED)
     Route: 048
     Dates: start: 20240927, end: 20240929
  4. IMOVANE [Suspect]
     Active Substance: ZOPICLONE
     Indication: Product administration error
     Dosage: 1 DOSAGE FORM, QD
     Route: 048
     Dates: start: 20240927, end: 20240929
  5. LORAZEPAM [Suspect]
     Active Substance: LORAZEPAM
     Indication: Product administration error
     Dosage: 1 DOSAGE FORM, Q6H
     Route: 048
     Dates: start: 20240927, end: 20240929
  6. METFORMIN HYDROCHLORIDE [Concomitant]
     Active Substance: METFORMIN HYDROCHLORIDE
     Indication: Product administration error
     Dosage: 1000 MILLIGRAM, QD
     Route: 048
     Dates: start: 20240927, end: 20240929
  7. PREDNISONE [Concomitant]
     Active Substance: PREDNISONE
     Indication: Product administration error
     Dosage: 1 MILLIGRAM, QD (COMPRESSED)
     Route: 048
     Dates: start: 20240927, end: 20240929
  8. VALSARTAN [Concomitant]
     Active Substance: VALSARTAN
     Indication: Product administration error
     Dosage: 1 DOSAGE FORM, QD (SCORED)
     Route: 048
     Dates: start: 20240927, end: 20240929
  9. POLYETHYLENE GLYCOLS [Concomitant]
     Active Substance: POLYETHYLENE GLYCOLS
     Indication: Product administration error
     Dosage: 4 DOSAGE FORM, QD
     Route: 048
     Dates: start: 20240927, end: 20240929

REACTIONS (3)
  - Somnolence [Recovering/Resolving]
  - Product administration error [Recovering/Resolving]
  - Wrong patient received product [Recovering/Resolving]

NARRATIVE: CASE EVENT DATE: 20240927
